FAERS Safety Report 12775345 (Version 8)
Quarter: 2017Q1

REPORT INFORMATION
  Report Type: Report from Study
  Country: US (occurrence: US)
  Receive Date: 20160923
  Receipt Date: 20170131
  Transmission Date: 20170428
  Serious: Yes (Life-Threatening, Hospitalization)
  Sender: FDA-Public Use
  Company Number: US-JNJFOC-20160606939

PATIENT
  Age: 67 Year
  Sex: Female

DRUGS (2)
  1. DURAGESIC [Suspect]
     Active Substance: FENTANYL
     Indication: PRODUCT USED FOR UNKNOWN INDICATION
     Dosage: STARTED 15 YEARS AGO
     Route: 062
  2. LOVENOX [Suspect]
     Active Substance: ENOXAPARIN SODIUM
     Indication: PRODUCT USED FOR UNKNOWN INDICATION
     Route: 065

REACTIONS (6)
  - Adverse event [Unknown]
  - Pulmonary haemorrhage [Recovered/Resolved]
  - Pain [Unknown]
  - Cardiac arrest [Recovered/Resolved]
  - Emotional distress [Unknown]
  - Surgery [Unknown]

NARRATIVE: CASE EVENT DATE: 20151225
